FAERS Safety Report 16542036 (Version 3)
Quarter: 2019Q4

REPORT INFORMATION
  Report Type: Spontaneous
  Country: US (occurrence: US)
  Receive Date: 20190708
  Receipt Date: 20191202
  Transmission Date: 20200122
  Serious: No
  Sender: FDA-Public Use
  Company Number: US-JNJFOC-20190630793

PATIENT
  Age: 52 Year
  Sex: Female
  Weight: 107.14 kg

DRUGS (5)
  1. WELLBUTRIN [Concomitant]
     Active Substance: BUPROPION HYDROCHLORIDE
     Indication: MAJOR DEPRESSION
     Dates: start: 20191118
  2. LAMICTAL [Concomitant]
     Active Substance: LAMOTRIGINE
     Indication: MAJOR DEPRESSION
     Dates: start: 20191118
  3. COREG [Concomitant]
     Active Substance: CARVEDILOL
     Indication: HYPERTENSION
     Dates: start: 20191118
  4. SPRAVATO [Suspect]
     Active Substance: ESKETAMINE
     Indication: MAJOR DEPRESSION
     Dates: start: 20191118
  5. PRISTIQ EXTENDED-RELEASE [Concomitant]
     Active Substance: DESVENLAFAXINE SUCCINATE
     Indication: MAJOR DEPRESSION
     Dates: start: 20191118

REACTIONS (2)
  - Hypoaesthesia [Recovered/Resolved]
  - Trigeminal nerve disorder [Recovered/Resolved]

NARRATIVE: CASE EVENT DATE: 20191118
